FAERS Safety Report 9741076 (Version 1)
Quarter: 2013Q4

REPORT INFORMATION
  Report Type: Spontaneous
  Country: US (occurrence: US)
  Receive Date: 20131209
  Receipt Date: 20131209
  Transmission Date: 20140711
  Serious: No
  Sender: FDA-Public Use
  Company Number: US-GILEAD-2008-0018356

PATIENT
  Age: 42 Year
  Sex: Female

DRUGS (2)
  1. HEPSERA [Suspect]
  2. TYZEKA [Concomitant]

REACTIONS (4)
  - Carbon dioxide decreased [None]
  - Blood urea nitrogen/creatinine ratio decreased [None]
  - Blood creatinine decreased [None]
  - Weight decreased [None]
